FAERS Safety Report 24369291 (Version 1)
Quarter: 2024Q3

REPORT INFORMATION
  Report Type: Report from Study
  Country: US (occurrence: US)
  Receive Date: 20240927
  Receipt Date: 20240927
  Transmission Date: 20241017
  Serious: No
  Sender: ROCHE
  Company Number: US-ROCHE-2631446

PATIENT
  Age: 40 Year
  Sex: Female

DRUGS (2)
  1. LUCENTIS [Suspect]
     Active Substance: RANIBIZUMAB
     Indication: Type 2 diabetes mellitus
     Dosage: 4-6 WEEKS AS NEEDED?DATE OF SERVICE: 07/DEC/2022, 01/MAR/2023, 02/JUN/2023
     Route: 065
     Dates: start: 20200323
  2. LUCENTIS [Suspect]
     Active Substance: RANIBIZUMAB
     Indication: Diabetic retinopathy

REACTIONS (2)
  - Off label use [Unknown]
  - No adverse event [Unknown]
